FAERS Safety Report 5804613-1 (Version None)
Quarter: 2008Q3

REPORT INFORMATION
  Report Type: 
  Country: None (occurrence: None)
  Receive Date: 20080702
  Receipt Date: 20080116
  Transmission Date: 20090109
  Serious: Yes (Hospitalization)
  Sender: FDA-Public Use
  Company Number: 541768

PATIENT
  Age: 54 Year
  Sex: Male

DRUGS (7)
  1. KLONOPIN [Suspect]
     Indication: ANXIETY
     Dosage: 1 MG 3 PER DAY
  2. CLONAZEPAM [Suspect]
     Indication: ANXIETY
     Dosage: 1 MG 3 PER DAY
  3. SEROQUEL [Concomitant]
  4. TRICOR [Concomitant]
  5. ATENOLOL [Concomitant]
  6. ASPIRIN [Concomitant]
  7. MULTIVITAMIN NOS (MULTIVITAMIN NOS) [Concomitant]

REACTIONS (4)
  - DIZZINESS [None]
  - ERECTILE DYSFUNCTION [None]
  - GASTROINTESTINAL INFECTION [None]
  - PNEUMONIA [None]
